FAERS Safety Report 11826538 (Version 1)
Quarter: 2015Q4

REPORT INFORMATION
  Report Type: Report from Study
  Country: US (occurrence: US)
  Receive Date: 20151211
  Receipt Date: 20151211
  Transmission Date: 20160305
  Serious: Yes (Hospitalization)
  Sender: FDA-Public Use
  Company Number: US-BAYER-2015-474167

PATIENT
  Age: 78 Year
  Sex: Male

DRUGS (1)
  1. NEXAVAR [Suspect]
     Active Substance: SORAFENIB
     Indication: HEPATOCELLULAR CARCINOMA
     Dosage: 400 MG, BID
     Route: 048
     Dates: start: 20151114, end: 20151121

REACTIONS (8)
  - Skin exfoliation [None]
  - Fatigue [None]
  - Dry skin [None]
  - Diarrhoea [None]
  - Loss of consciousness [None]
  - Fall [None]
  - Asthenia [None]
  - Abdominal distension [None]

NARRATIVE: CASE EVENT DATE: 201511
